FAERS Safety Report 9414720 (Version 1)
Quarter: 2013Q3

REPORT INFORMATION
  Report Type: Spontaneous
  Country: US (occurrence: None)
  Receive Date: 20130717
  Receipt Date: 20130717
  Transmission Date: 20140515
  Serious: Yes (Hospitalization)
  Sender: FDA-Public Use
  Company Number: TPA2013A06669

PATIENT
  Age: 71 Year
  Sex: Female
  Weight: 89.36 kg

DRUGS (5)
  1. PIOGLITAZONE HYDROCHLORIDE [Suspect]
     Indication: CARDIOVASCULAR EVENT PROPHYLAXIS
     Route: 048
     Dates: start: 20080428, end: 20080526
  2. PIOGLITAZONE HYDROCHLORIDE [Suspect]
     Indication: INSULIN RESISTANCE
     Route: 048
     Dates: start: 20080428, end: 20080526
  3. ZOLFT (SERTRALINE HYDROCHLORIDE) [Concomitant]
  4. LIPITOR (ARTORVASTATIN CALCIUM) [Concomitant]
  5. PLAVIX (CLOPIDOGREL BISULFATE) [Concomitant]

REACTIONS (2)
  - Lipoma [None]
  - Diverticulitis [None]
